FAERS Safety Report 5195047-4 (Version None)
Quarter: 2006Q4

REPORT INFORMATION
  Report Type: 
  Country: None (occurrence: None)
  Receive Date: 20061229
  Receipt Date: 20061218
  Transmission Date: 20070319
  Serious: Yes (Hospitalization)
  Sender: FDA-Public Use
  Company Number: KR-JNJFOC-20061205298

PATIENT
  Age: 31 Year
  Sex: Female

DRUGS (6)
  1. TYLENOL [Suspect]
     Indication: MYALGIA
     Route: 048
  2. TYLENOL [Suspect]
     Indication: HEADACHE
     Route: 048
  3. ACETAMINOPHEN [Suspect]
     Indication: MYALGIA
     Route: 048
  4. ACETAMINOPHEN [Suspect]
     Indication: HEADACHE
     Route: 048
  5. HERBAL MEDICATION [Concomitant]
     Indication: HEADACHE
  6. HERBAL MEDICATION [Concomitant]
     Indication: MYALGIA

REACTIONS (5)
  - DRUG ADMINISTRATION ERROR [None]
  - DRUG INEFFECTIVE [None]
  - MENINGITIS [None]
  - OVERDOSE [None]
  - URINARY RETENTION [None]
